FAERS Safety Report 4351748-9 (Version None)
Quarter: 2004Q2

REPORT INFORMATION
  Report Type: 
  Country: None (occurrence: None)
  Receive Date: 20040503
  Receipt Date: 20040331
  Transmission Date: 20050107
  Serious: Yes (Death)
  Sender: FDA-Public Use
  Company Number: US-GLAXOSMITHKLINE-A0505416A

PATIENT
  Age: 27 Year
  Sex: Female
  Weight: 93.2 kg

DRUGS (3)
  1. LAMICTAL [Suspect]
     Indication: BIPOLAR DISORDER
     Dosage: 150MG TWICE PER DAY
     Route: 048
     Dates: start: 20030515
  2. GEODON [Concomitant]
     Dosage: 160MG AT NIGHT
  3. ABILIFY [Concomitant]
     Dosage: 15MG PER DAY
     Dates: start: 20030724

REACTIONS (2)
  - DEPRESSED LEVEL OF CONSCIOUSNESS [None]
  - SUDDEN CARDIAC DEATH [None]
